FAERS Safety Report 23327647 (Version 1)
Quarter: 2023Q4

REPORT INFORMATION
  Report Type: Spontaneous
  Country: US (occurrence: US)
  Receive Date: 20231221
  Receipt Date: 20231221
  Transmission Date: 20240110
  Serious: No
  Sender: FDA-Public Use
  Company Number: US-INCYTE CORPORATION-2023IN012919

PATIENT

DRUGS (1)
  1. OPZELURA [Suspect]
     Active Substance: RUXOLITINIB PHOSPHATE
     Indication: Dyshidrotic eczema
     Dosage: UNK, BID
     Route: 065

REACTIONS (3)
  - Off label use [Unknown]
  - Dyshidrotic eczema [Unknown]
  - Condition aggravated [Unknown]
